FAERS Safety Report 5945604-X (Version None)
Quarter: 2008Q4

REPORT INFORMATION
  Report Type: 
  Country: None (occurrence: None)
  Receive Date: 20081107
  Receipt Date: 20081027
  Transmission Date: 20090506
  Serious: Yes (Disabling)
  Sender: FDA-Public Use
  Company Number: GB-PFIZER INC-2008091514

PATIENT
  Age: 36 Year
  Sex: Female
  Weight: 66 kg

DRUGS (3)
  1. CHAMPIX [Suspect]
     Indication: SMOKING CESSATION THERAPY
     Route: 048
     Dates: start: 20080424, end: 20080909
  2. ACETAMINOPHEN W/ CODEINE [Concomitant]
  3. DICLOFENAC SODIUM [Concomitant]
     Route: 048

REACTIONS (2)
  - HYPERVENTILATION [None]
  - PANIC ATTACK [None]
